FAERS Safety Report 11129300 (Version 1)
Quarter: 2015Q2

REPORT INFORMATION
  Report Type: Spontaneous
  Country: US (occurrence: US)
  Receive Date: 20150521
  Receipt Date: 20150521
  Transmission Date: 20150821
  Serious: No
  Sender: FDA-Public Use
  Company Number: US-PFIZER INC-2015168482

PATIENT
  Sex: Female

DRUGS (3)
  1. LIDOCAINE HCL [Suspect]
     Active Substance: LIDOCAINE HYDROCHLORIDE
  2. FENTANYL. [Suspect]
     Active Substance: FENTANYL
  3. VERSED [Suspect]
     Active Substance: MIDAZOLAM HYDROCHLORIDE

REACTIONS (1)
  - Drug hypersensitivity [Unknown]
